FAERS Safety Report 4331199-3 (Version None)
Quarter: 2004Q1

REPORT INFORMATION
  Report Type: 
  Country: None (occurrence: None)
  Receive Date: 20040331
  Receipt Date: 20040315
  Transmission Date: 20041129
  Serious: Yes (Hospitalization)
  Sender: FDA-Public Use
  Company Number: 2004AP00083

PATIENT
  Age: 54 Year
  Sex: Male
  Weight: 80 kg

DRUGS (8)
  1. IRESSA [Suspect]
     Indication: COLORECTAL CANCER
     Dosage: 250 MG DAILY PO
     Route: 048
     Dates: start: 20031205, end: 20040103
  2. IRESSA [Suspect]
     Indication: COLORECTAL CANCER
     Dosage: 250 MG DAILY PO
     Route: 048
     Dates: start: 20040108
  3. XELODA [Suspect]
     Indication: COLORECTAL CANCER
     Dosage: 4000 MG/M2 DAILY PO
     Route: 048
     Dates: start: 20031205, end: 20040102
  4. XELODA [Suspect]
     Indication: COLORECTAL CANCER
     Dosage: 4000 MG/M2 DAILY PO
     Route: 048
     Dates: start: 20040107
  5. ELOXATIN [Suspect]
     Indication: COLORECTAL CANCER
     Dosage: 240 MG/M2 DAILY IV
     Route: 042
     Dates: start: 20031205, end: 20031229
  6. ELOXATIN [Suspect]
     Indication: COLORECTAL CANCER
     Dosage: 240 M G/M2 DAILY IV
     Route: 042
     Dates: start: 20040119
  7. MS CONTIN [Concomitant]
  8. EPREX [Concomitant]

REACTIONS (4)
  - DIARRHOEA [None]
  - HYPOKALAEMIA [None]
  - NAUSEA [None]
  - VOMITING [None]
